FAERS Safety Report 7078749-4 (Version None)
Quarter: 2010Q4

REPORT INFORMATION
  Report Type: 
  Country: None (occurrence: None)
  Receive Date: 20101102
  Receipt Date: 20101027
  Transmission Date: 20110411
  Serious: Yes (Other)
  Sender: FDA-Public Use
  Company Number: GR-PFIZER INC-2010136514

PATIENT
  Age: 51 Year
  Sex: Female

DRUGS (5)
  1. XANAX [Suspect]
     Indication: STRESS
     Dosage: 0.5 OR 0.25 MG, AS NEEDED
     Route: 048
     Dates: start: 20100701
  2. ENDOXAN [Concomitant]
     Dosage: UNK
  3. TAXOTERE [Concomitant]
     Dosage: UNK
  4. ZANTAC [Concomitant]
     Dosage: UNK
  5. CETIRIZINE HCL [Concomitant]
     Dosage: UNK

REACTIONS (3)
  - BACK PAIN [None]
  - MUSCLE SPASMS [None]
  - PAIN [None]
